FAERS Safety Report 16300150 (Version 3)
Quarter: 2022Q1

REPORT INFORMATION
  Report Type: Spontaneous
  Country: US (occurrence: None)
  Receive Date: 20190510
  Receipt Date: 20220104
  Transmission Date: 20220423
  Serious: Yes (Other)
  Sender: FDA-Public Use
  Company Number: 2019SE64904

PATIENT
  Age: 58 Year
  Sex: Female

DRUGS (60)
  1. NEXIUM [Suspect]
     Active Substance: ESOMEPRAZOLE MAGNESIUM
     Indication: Gastrooesophageal reflux disease
     Route: 048
     Dates: start: 200001, end: 201612
  2. NEXIUM [Suspect]
     Active Substance: ESOMEPRAZOLE MAGNESIUM
     Indication: Gastrooesophageal reflux disease
     Route: 048
     Dates: start: 200104, end: 200311
  3. NEXIUM [Suspect]
     Active Substance: ESOMEPRAZOLE MAGNESIUM
     Indication: Gastrooesophageal reflux disease
     Route: 048
     Dates: start: 20130924
  4. NEXIUM [Suspect]
     Active Substance: ESOMEPRAZOLE MAGNESIUM
     Indication: Gastrooesophageal reflux disease
     Route: 048
     Dates: start: 200104, end: 2016
  5. NEXIUM [Suspect]
     Active Substance: ESOMEPRAZOLE MAGNESIUM
     Indication: Gastrooesophageal reflux disease
     Dosage: GENERIC
     Route: 065
     Dates: start: 201501, end: 202009
  6. PRILOSEC [Suspect]
     Active Substance: OMEPRAZOLE MAGNESIUM
     Indication: Gastrooesophageal reflux disease
     Route: 048
     Dates: start: 200001, end: 201612
  7. PRILOSEC [Suspect]
     Active Substance: OMEPRAZOLE MAGNESIUM
     Indication: Gastrooesophageal reflux disease
     Route: 048
     Dates: start: 198912, end: 199001
  8. PRILOSEC [Suspect]
     Active Substance: OMEPRAZOLE MAGNESIUM
     Indication: Gastrooesophageal reflux disease
     Dosage: GENERIC
     Route: 048
     Dates: start: 200012, end: 20200921
  9. PRILOSEC [Suspect]
     Active Substance: OMEPRAZOLE MAGNESIUM
     Indication: Gastrooesophageal reflux disease
     Route: 048
     Dates: start: 19970930
  10. PRILOSEC [Suspect]
     Active Substance: OMEPRAZOLE MAGNESIUM
     Indication: Gastrooesophageal reflux disease
     Dosage: 20 MG AND 40 MG ONCE DAILY
     Route: 048
     Dates: start: 1989, end: 2013
  11. PRILOSEC [Suspect]
     Active Substance: OMEPRAZOLE MAGNESIUM
     Indication: Gastrooesophageal reflux disease
     Dosage: GENERIC
     Route: 065
     Dates: start: 200212, end: 202009
  12. PRILOSEC OTC [Suspect]
     Active Substance: OMEPRAZOLE MAGNESIUM
     Indication: Gastrooesophageal reflux disease
     Route: 048
     Dates: start: 201201, end: 202009
  13. PREVACID [Suspect]
     Active Substance: LANSOPRAZOLE
     Indication: Gastrooesophageal reflux disease
     Route: 065
     Dates: start: 200312, end: 20200921
  14. PROTONIX [Suspect]
     Active Substance: PANTOPRAZOLE SODIUM
     Indication: Gastrooesophageal reflux disease
     Route: 065
     Dates: start: 201212, end: 201608
  15. PROTONIX [Suspect]
     Active Substance: PANTOPRAZOLE SODIUM
     Indication: Gastrooesophageal reflux disease
     Dosage: GENERIC
     Route: 065
     Dates: start: 201101, end: 201501
  16. HYDROCHLOROTHIAZIDE [Concomitant]
     Active Substance: HYDROCHLOROTHIAZIDE
     Indication: Hypertension
     Dates: start: 2010, end: 2017
  17. VERAPAMIL [Concomitant]
     Active Substance: VERAPAMIL HYDROCHLORIDE
     Indication: Hypertension
     Dates: start: 2010, end: 2017
  18. VERAPAMIL [Concomitant]
     Active Substance: VERAPAMIL HYDROCHLORIDE
     Indication: Angina pectoris
     Dates: start: 2010, end: 2017
  19. VERAPAMIL [Concomitant]
     Active Substance: VERAPAMIL HYDROCHLORIDE
     Indication: Cardiac disorder
     Dates: start: 2010, end: 2017
  20. LEVAQUIN [Concomitant]
     Active Substance: LEVOFLOXACIN
     Indication: Infection
     Dates: start: 2010, end: 2017
  21. CETIRIZINE HYDROCHLORIDE [Concomitant]
     Active Substance: CETIRIZINE HYDROCHLORIDE
     Indication: Hypersensitivity
     Dates: start: 2010, end: 2017
  22. ATENOLOL [Concomitant]
     Active Substance: ATENOLOL
     Indication: Angina pectoris
     Dates: start: 2010, end: 2017
  23. ATENOLOL [Concomitant]
     Active Substance: ATENOLOL
     Indication: Hypertension
     Dates: start: 2010, end: 2017
  24. ALBUTEROL [Concomitant]
     Active Substance: ALBUTEROL
     Indication: Wheezing
     Dates: start: 2010, end: 2017
  25. ALBUTEROL [Concomitant]
     Active Substance: ALBUTEROL
     Indication: Dyspnoea
     Dates: start: 2010, end: 2017
  26. ADVAIR HFA [Concomitant]
     Active Substance: FLUTICASONE PROPIONATE\SALMETEROL XINAFOATE
     Indication: Asthma
     Dates: start: 2010, end: 2017
  27. ADVAIR HFA [Concomitant]
     Active Substance: FLUTICASONE PROPIONATE\SALMETEROL XINAFOATE
     Indication: Bronchitis chronic
     Dates: start: 2010, end: 2017
  28. PRINIVIL [Concomitant]
     Active Substance: LISINOPRIL
     Indication: Hypertension
     Dates: start: 2010, end: 2017
  29. PRINIVIL [Concomitant]
     Active Substance: LISINOPRIL
     Indication: Cardiac failure congestive
     Dates: start: 2010, end: 2017
  30. MONTELUKAST [Concomitant]
     Active Substance: MONTELUKAST SODIUM
     Indication: Asthma
     Dates: start: 2010, end: 2017
  31. MONTELUKAST [Concomitant]
     Active Substance: MONTELUKAST SODIUM
     Indication: Wheezing
     Dates: start: 2010, end: 2017
  32. ACETAMINOPHEN [Concomitant]
     Active Substance: ACETAMINOPHEN
  33. OXYCODONE [Concomitant]
     Active Substance: OXYCODONE
  34. VITAMIN D [Concomitant]
     Active Substance: VITAMIN D NOS
  35. PEPCID [Concomitant]
     Active Substance: FAMOTIDINE
  36. TAGAMET [Concomitant]
     Active Substance: CIMETIDINE
  37. ZANTAC [Concomitant]
     Active Substance: RANITIDINE HYDROCHLORIDE
  38. PROMETHAZINE [Concomitant]
     Active Substance: PROMETHAZINE HYDROCHLORIDE
  39. NASONEX [Concomitant]
     Active Substance: MOMETASONE FUROATE
  40. MEPERIDINE [Concomitant]
     Active Substance: MEPERIDINE
  41. CYCLOBENZAPRINE [Concomitant]
     Active Substance: CYCLOBENZAPRINE
  42. AZITHROMYCIN [Concomitant]
     Active Substance: AZITHROMYCIN
  43. MEPERIDINE HYDROCHLORIDE\PROMETHAZINE HYDROCHLORIDE [Concomitant]
     Active Substance: MEPERIDINE HYDROCHLORIDE\PROMETHAZINE HYDROCHLORIDE
  44. COLCHICINE [Concomitant]
     Active Substance: COLCHICINE
  45. FLONASE [Concomitant]
     Active Substance: FLUTICASONE PROPIONATE
  46. FERROUS SULFATE [Concomitant]
     Active Substance: FERROUS SULFATE
  47. LEVOTHYROXINE [Concomitant]
     Active Substance: LEVOTHYROXINE
  48. GUAIFENESIN [Concomitant]
     Active Substance: GUAIFENESIN
  49. PREDNISONE [Concomitant]
     Active Substance: PREDNISONE
  50. WARFARIN [Concomitant]
     Active Substance: WARFARIN
  51. CLONIDINE [Concomitant]
     Active Substance: CLONIDINE
  52. INDOCIN [Concomitant]
     Active Substance: INDOMETHACIN
  53. PERCOCET [Concomitant]
     Active Substance: ACETAMINOPHEN\OXYCODONE HYDROCHLORIDE
  54. VITAMINS [Concomitant]
     Active Substance: VITAMINS
  55. AMLODIPINE [Concomitant]
     Active Substance: AMLODIPINE BESYLATE
  56. ADVAIR DISKUS [Concomitant]
     Active Substance: FLUTICASONE PROPIONATE\SALMETEROL XINAFOATE
  57. ZOFRAN [Concomitant]
     Active Substance: ONDANSETRON HYDROCHLORIDE
  58. VICODIN [Concomitant]
     Active Substance: ACETAMINOPHEN\HYDROCODONE BITARTRATE
  59. TUMS [Concomitant]
     Active Substance: CALCIUM CARBONATE
  60. ROLAIDS [Concomitant]
     Active Substance: CALCIUM CARBONATE\MAGNESIUM HYDROXIDE

REACTIONS (3)
  - Chronic kidney disease [Not Recovered/Not Resolved]
  - Acute kidney injury [Not Recovered/Not Resolved]
  - Renal failure [Not Recovered/Not Resolved]

NARRATIVE: CASE EVENT DATE: 20100101
